FAERS Safety Report 7469130-4 (Version None)
Quarter: 2011Q2

REPORT INFORMATION
  Report Type: 
  Country: None (occurrence: None)
  Receive Date: 20110510
  Receipt Date: 20110426
  Transmission Date: 20111010
  Serious: Yes (Disabling, Other)
  Sender: FDA-Public Use
  Company Number: US-ELI_LILLY_AND_COMPANY-US201105000068

PATIENT
  Age: 53 Year
  Sex: Female

DRUGS (6)
  1. CYMBALTA [Suspect]
     Dosage: 60 MG, UNKNOWN
     Route: 065
     Dates: start: 20090101, end: 20100101
  2. GLUCOTROL [Concomitant]
     Dosage: UNK
     Route: 065
  3. CYMBALTA [Suspect]
     Indication: DEPRESSION
     Dosage: 30 MG, QD
     Dates: start: 20090101, end: 20090101
  4. ZETIA [Concomitant]
     Dosage: UNK
     Route: 065
  5. METFORMIN HCL [Concomitant]
     Dosage: UNK
     Route: 065
  6. CYMBALTA [Suspect]
     Dosage: 30 MG, UNKNOWN
     Route: 065

REACTIONS (21)
  - BLOOD POTASSIUM DECREASED [None]
  - NAUSEA [None]
  - BLOOD CALCIUM DECREASED [None]
  - PLATELET COUNT DECREASED [None]
  - HEADACHE [None]
  - RASH PRURITIC [None]
  - MEMORY IMPAIRMENT [None]
  - ASTHENIA [None]
  - DRY MOUTH [None]
  - FEELING ABNORMAL [None]
  - THINKING ABNORMAL [None]
  - HAEMORRHAGE [None]
  - DISTURBANCE IN ATTENTION [None]
  - CONTUSION [None]
  - GAIT DISTURBANCE [None]
  - COUGH [None]
  - HAEMATEMESIS [None]
  - LIMB DISCOMFORT [None]
  - BLOOD GLUCOSE INCREASED [None]
  - PAIN [None]
  - MUSCLE SPASMS [None]
